FAERS Safety Report 7263939-8 (Version None)
Quarter: 2011Q1

REPORT INFORMATION
  Report Type: 
  Country: None (occurrence: None)
  Receive Date: 20110130
  Receipt Date: 20101030
  Transmission Date: 20110831
  Serious: No
  Sender: FDA-Public Use
  Company Number: US-ABBOTT-10P-163-0682516-00

PATIENT
  Age: 68 Year
  Sex: Female

DRUGS (5)
  1. HUMIRA [Suspect]
     Dosage: ONE PEN
  2. HUMIRA [Suspect]
     Indication: CROHN'S DISEASE
     Dosage: 4 PENS
     Dates: start: 20101019, end: 20101019
  3. HUMIRA [Suspect]
     Dosage: 2 PENS
     Dates: start: 20101102, end: 20101102
  4. THYROID TAB [Concomitant]
     Indication: HYPOTHYROIDISM
  5. HUMIRA [Suspect]

REACTIONS (1)
  - INJECTION SITE RASH [None]
